FAERS Safety Report 9529248 (Version 1)
Quarter: 2013Q1

REPORT INFORMATION
  Report Type: Spontaneous
  Country: US (occurrence: None)
  Receive Date: 20130318
  Receipt Date: 20130318
  Transmission Date: 20140127
  Serious: Yes (Hospitalization, Other)
  Sender: FDA-Public Use
  Company Number: 1209USA007628

PATIENT
  Age: 43 Year
  Sex: Male

DRUGS (3)
  1. PEGINTRON [Suspect]
     Indication: HEPATITIS
     Dates: start: 20120622, end: 20121130
  2. RIBAVIRIN (RIBAVIRIN) TABLET, 200 MG [Suspect]
     Indication: HEPATITIS C
     Route: 048
     Dates: start: 20120622, end: 20121207
  3. TELAPREVIR (TELAPREVIR) [Suspect]
     Indication: HEPATITIS C
     Dates: start: 20120622, end: 20120913

REACTIONS (1)
  - Haemoglobin decreased [None]
